FAERS Safety Report 15423860 (Version 1)
Quarter: 2018Q3

REPORT INFORMATION
  Report Type: Spontaneous
  Country: US (occurrence: US)
  Receive Date: 20180920
  Receipt Date: 20180920
  Transmission Date: 20181010
  Serious: No
  Sender: FDA-Public Use
  Company Number: None

PATIENT
  Age: 40 Year
  Sex: Female
  Weight: 73.35 kg

DRUGS (20)
  1. ATORVASTATIN [Concomitant]
     Active Substance: ATORVASTATIN
  2. DICYCLOMINE [Concomitant]
     Active Substance: DICYCLOMINE HYDROCHLORIDE
  3. MELATONIN [Concomitant]
     Active Substance: MELATONIN
  4. DICLOFENAC [Concomitant]
     Active Substance: DICLOFENAC
  5. FLUTICASONE PROP SPRAY [Concomitant]
  6. ONDANSETRON ODT [Concomitant]
     Active Substance: ONDANSETRON
  7. PERIACTINE [Concomitant]
     Active Substance: CYPROHEPTADINE HYDROCHLORIDE
  8. MULTIVITAMIN [Concomitant]
     Active Substance: VITAMINS
  9. VITAMIN B2 [Concomitant]
     Active Substance: RIBOFLAVIN
  10. CLONAZEPAM. [Concomitant]
     Active Substance: CLONAZEPAM
  11. KEPPRA [Concomitant]
     Active Substance: LEVETIRACETAM
  12. AIMOVIG [Suspect]
     Active Substance: ERENUMAB-AOOE
     Indication: MIGRAINE PROPHYLAXIS
     Dosage: ?          QUANTITY:1 INJECTION(S);OTHER FREQUENCY:MONTHLY;OTHER ROUTE:INJECTED IN THIGH?
     Dates: start: 20180712, end: 20180912
  13. IUD NOS [Concomitant]
     Active Substance: COPPER OR LEVONORGESTREL
  14. REGLAN [Concomitant]
     Active Substance: METOCLOPRAMIDE HYDROCHLORIDE
  15. TOPAMAX [Concomitant]
     Active Substance: TOPIRAMATE
  16. VIMPAT [Concomitant]
     Active Substance: LACOSAMIDE
  17. COQ10 [Concomitant]
     Active Substance: UBIDECARENONE
  18. AMITRIPTYLINE [Concomitant]
     Active Substance: AMITRIPTYLINE
  19. MAGNESIUM [Concomitant]
     Active Substance: MAGNESIUM
  20. FOLIC ACID. [Concomitant]
     Active Substance: FOLIC ACID

REACTIONS (2)
  - Dysgeusia [None]
  - Respiratory disorder [None]

NARRATIVE: CASE EVENT DATE: 20180712
